FAERS Safety Report 9192410 (Version 1)
Quarter: 2013Q1

REPORT INFORMATION
  Report Type: Spontaneous
  Country: GB (occurrence: GB)
  Receive Date: 20130327
  Receipt Date: 20130327
  Transmission Date: 20140127
  Serious: Yes (Other)
  Sender: FDA-Public Use
  Company Number: GB-JNJFOC-20130310332

PATIENT
  Sex: 0

DRUGS (3)
  1. REMICADE [Suspect]
     Indication: COLITIS ULCERATIVE
     Dosage: 2,6 WEEKS
     Route: 042
  2. 5 AMINOSALICYLIC ACID [Concomitant]
     Route: 048
  3. THIOPURINE [Concomitant]
     Route: 065

REACTIONS (2)
  - Colectomy [Unknown]
  - C-reactive protein increased [Unknown]
